FAERS Safety Report 9765540 (Version 1)
Quarter: 2013Q4

REPORT INFORMATION
  Report Type: Spontaneous
  Country: US (occurrence: US)
  Receive Date: 20131217
  Receipt Date: 20131217
  Transmission Date: 20140711
  Serious: No
  Sender: FDA-Public Use
  Company Number: US-GLAXOSMITHKLINE-A1007848A

PATIENT
  Sex: Male

DRUGS (2)
  1. VOTRIENT [Suspect]
     Indication: PANCREATIC CARCINOMA
     Dosage: 800MG PER DAY
     Route: 048
  2. BENICAR [Concomitant]
     Indication: HYPERTENSION

REACTIONS (2)
  - Muscle spasms [Not Recovered/Not Resolved]
  - Blood pressure increased [Unknown]
